FAERS Safety Report 21397164 (Version 2)
Quarter: 2022Q4

REPORT INFORMATION
  Report Type: Spontaneous
  Country: US (occurrence: US)
  Receive Date: 20220930
  Receipt Date: 20221003
  Transmission Date: 20230113
  Serious: No
  Sender: FDA-Public Use
  Company Number: US-PFIZER INC-202201193632

PATIENT
  Age: 71 Year
  Sex: Female

DRUGS (1)
  1. PAXLOVID [Suspect]
     Active Substance: NIRMATRELVIR\RITONAVIR
     Indication: COVID-19 treatment
     Dosage: 3 TABLETS TWICE A DAY FOR 5 DAYS
     Dates: start: 20220925

REACTIONS (9)
  - Diarrhoea [Not Recovered/Not Resolved]
  - Flushing [Unknown]
  - Erythema [Unknown]
  - Skin reaction [Unknown]
  - Dysgeusia [Unknown]
  - Malaise [Unknown]
  - Chest pain [Unknown]
  - Decreased appetite [Unknown]
  - Weight decreased [Unknown]

NARRATIVE: CASE EVENT DATE: 20220925
